FAERS Safety Report 5318796-3 (Version None)
Quarter: 2007Q2

REPORT INFORMATION
  Report Type: 
  Country: None (occurrence: None)
  Receive Date: 20070503
  Receipt Date: 20070418
  Transmission Date: 20071010
  Serious: Yes (Death, Hospitalization)
  Sender: FDA-Public Use
  Company Number: 2007000235

PATIENT
  Age: 44 Year
  Sex: Female

DRUGS (2)
  1. TARCEVA [Suspect]
     Indication: NON-SMALL CELL LUNG CANCER
     Dosage: 150 MG (QD), ORAL
     Route: 048
     Dates: start: 20060615
  2. HOMEOPATHIC THERAPY NOS [Concomitant]

REACTIONS (11)
  - CYTOLYTIC HEPATITIS [None]
  - DIARRHOEA [None]
  - DRUG INTERACTION [None]
  - DRUG TOXICITY [None]
  - GASTRIC DISORDER [None]
  - MALIGNANT NEOPLASM PROGRESSION [None]
  - NON-SMALL CELL LUNG CANCER [None]
  - OESOPHAGITIS [None]
  - PURULENCE [None]
  - RASH [None]
  - STAPHYLOCOCCAL INFECTION [None]
